FAERS Safety Report 4874565-X (Version None)
Quarter: 2006Q1

REPORT INFORMATION
  Report Type: 
  Country: None (occurrence: None)
  Receive Date: 20060106
  Receipt Date: 20040301
  Transmission Date: 20060701
  Serious: Yes (Death, Hospitalization, Other)
  Sender: FDA-Public Use
  Company Number: NL-ABBOTT-04P-114-0251882-00

PATIENT
  Sex: Female

DRUGS (4)
  1. DEPAKENE [Suspect]
     Indication: EPILEPSY
     Dates: start: 20030809, end: 20030919
  2. DEPAKENE [Suspect]
     Dates: start: 20030919, end: 20031001
  3. CARBAMAZEPINE [Concomitant]
     Indication: EPILEPSY
     Dosage: 600 MG AND 400 MG DAILY
     Dates: start: 20030811, end: 20030919
  4. OXCARBAZEPINE [Concomitant]
     Indication: DRUG USE FOR UNKNOWN INDICATION

REACTIONS (19)
  - AMMONIA INCREASED [None]
  - ANOREXIA [None]
  - APATHY [None]
  - APHASIA [None]
  - COAGULOPATHY [None]
  - EPILEPSY [None]
  - FATIGUE [None]
  - HEPATIC FAILURE [None]
  - HEPATIC NECROSIS [None]
  - HEPATORENAL SYNDROME [None]
  - HYPOTENSION [None]
  - HYPOXIA [None]
  - JAUNDICE [None]
  - MULTI-ORGAN FAILURE [None]
  - PULMONARY OEDEMA [None]
  - RASH [None]
  - RESPIRATORY FAILURE [None]
  - SOMNOLENCE [None]
  - TOXIC SKIN ERUPTION [None]
